FAERS Safety Report 17651101 (Version 4)
Quarter: 2020Q2

REPORT INFORMATION
  Report Type: Spontaneous
  Country: FR (occurrence: FR)
  Receive Date: 20200409
  Receipt Date: 20200624
  Transmission Date: 20200713
  Serious: Yes (Hospitalization, Other)
  Sender: FDA-Public Use
  Company Number: FR-AUROBINDO-AUR-APL-2020-016841

PATIENT
  Age: 71 Year
  Sex: Male

DRUGS (3)
  1. PAROXETINE. [Suspect]
     Active Substance: PAROXETINE
     Indication: MAJOR DEPRESSION
     Dosage: UNK
     Route: 065
     Dates: start: 2017
  2. SERTRALINE [Suspect]
     Active Substance: SERTRALINE HYDROCHLORIDE
     Dosage: 50 MILLIGRAM, ONCE A DAY
     Route: 065
     Dates: start: 20171109
  3. SERTRALINE [Suspect]
     Active Substance: SERTRALINE HYDROCHLORIDE
     Indication: MAJOR DEPRESSION
     Dosage: UNK (SEVERAL YEARS)
     Route: 065

REACTIONS (12)
  - Epistaxis [Recovered/Resolved]
  - Platelet function test abnormal [Unknown]
  - Condition aggravated [Unknown]
  - Platelet aggregation decreased [Unknown]
  - Packed red blood cell transfusion [Recovered/Resolved]
  - Platelet transfusion [Recovered/Resolved]
  - Arterial ligation [Recovered/Resolved]
  - Anaemia [Recovered/Resolved]
  - Platelet disorder [Recovered/Resolved]
  - Nasal cavity packing [Recovered/Resolved]
  - Platelet dysfunction [Recovered/Resolved]
  - Thrombocytopenia [Recovered/Resolved]

NARRATIVE: CASE EVENT DATE: 2015
